FAERS Safety Report 9464743 (Version 2)
Quarter: 2013Q3

REPORT INFORMATION
  Report Type: Spontaneous
  Country: US (occurrence: US)
  Receive Date: 20130819
  Receipt Date: 20130911
  Transmission Date: 20140515
  Serious: Yes (Life-Threatening, Hospitalization)
  Sender: FDA-Public Use
  Company Number: US-GLAXOSMITHKLINE-A1037935A

PATIENT
  Age: 75 Year
  Sex: Female

DRUGS (9)
  1. VOTRIENT [Suspect]
     Indication: RENAL CANCER
     Dosage: 600MG PER DAY
     Route: 048
     Dates: start: 201308, end: 20130812
  2. NORVASC [Concomitant]
  3. OMEPRAZOLE [Concomitant]
  4. VICODIN [Concomitant]
  5. IRON [Concomitant]
  6. CLONIDINE [Concomitant]
  7. COREG [Concomitant]
  8. HCTZ [Concomitant]
  9. NITROGLYCERINE [Concomitant]

REACTIONS (1)
  - Hypertensive crisis [Recovered/Resolved]
